FAERS Safety Report 21662214 (Version 1)
Quarter: 2022Q4

REPORT INFORMATION
  Report Type: Report from Study
  Country: US (occurrence: US)
  Receive Date: 20221130
  Receipt Date: 20221130
  Transmission Date: 20230113
  Serious: Yes (Other)
  Sender: FDA-Public Use
  Company Number: US-SA-2022SA485820

PATIENT

DRUGS (1)
  1. ALEMTUZUMAB [Suspect]
     Active Substance: ALEMTUZUMAB
     Indication: Multiple sclerosis
     Dosage: 12 MG, QD (COURSE 1 ON 5 CONSECUTIVE DAYS AT BASELINE AND COURSE 2 ON 3 CONSECUTIVE DAYS)
     Route: 042

REACTIONS (1)
  - Pancytopenia [Unknown]
